FAERS Safety Report 15806232 (Version 1)
Quarter: 2019Q1

REPORT INFORMATION
  Report Type: Spontaneous
  Country: US (occurrence: US)
  Receive Date: 20190110
  Receipt Date: 20190110
  Transmission Date: 20190417
  Serious: No
  Sender: FDA-Public Use
  Company Number: US-PFIZER INC-2016238580

PATIENT
  Age: 8 Year
  Sex: Female

DRUGS (1)
  1. GENOTROPIN [Suspect]
     Active Substance: SOMATROPIN
     Dosage: 1.4 MG, DAILY
     Dates: start: 20111105

REACTIONS (6)
  - Headache [Unknown]
  - Red blood cell count increased [Unknown]
  - Wrong technique in device usage process [Unknown]
  - Blood cholesterol decreased [Unknown]
  - Blood glucose increased [Unknown]
  - Overdose [Unknown]

NARRATIVE: CASE EVENT DATE: 20180319
